FAERS Safety Report 7104634 (Version 3)
Quarter: 2014Q1

REPORT INFORMATION
  Report Type: Spontaneous
  Country: CN (occurrence: CN)
  Receive Date: 20090903
  Receipt Date: 20140312
  Transmission Date: 20141002
  Serious: Yes (Death)
  Sender: FDA-Public Use
  Company Number: CN-BRACCO-000085

PATIENT
  Age: 11 Year
  Sex: Male
  Weight: 70 kg

DRUGS (1)
  1. MULTIHANCE [Suspect]
     Indication: NUCLEAR MAGNETIC RESONANCE IMAGING
     Dosage: ADMINISTED AT 2ML/SEC
     Route: 042
     Dates: start: 20090619, end: 20090619

REACTIONS (1)
  - Anaphylactic shock [Fatal]
